FAERS Safety Report 25418172 (Version 1)
Quarter: 2025Q2

REPORT INFORMATION
  Report Type: Spontaneous
  Country: PL (occurrence: PL)
  Receive Date: 20250610
  Receipt Date: 20250610
  Transmission Date: 20250716
  Serious: Yes (Hospitalization)
  Sender: AMERICAN REGENT
  Company Number: PL-AMERICAN REGENT INC-2025002338

PATIENT
  Age: 39 Year
  Sex: Female

DRUGS (1)
  1. FERINJECT [Suspect]
     Active Substance: FERRIC CARBOXYMALTOSE
     Indication: Product used for unknown indication
     Route: 042
     Dates: start: 20250530, end: 20250530

REACTIONS (5)
  - Hypoaesthesia oral [Recovered/Resolved]
  - Discomfort [Recovered/Resolved]
  - Hypoaesthesia [Recovered/Resolved]
  - Rash macular [Recovered/Resolved]
  - Pruritus [Unknown]

NARRATIVE: CASE EVENT DATE: 20250530
